FAERS Safety Report 8311116-1 (Version None)
Quarter: 2012Q2

REPORT INFORMATION
  Report Type: 
  Country: None (occurrence: None)
  Receive Date: 20120425
  Receipt Date: 20120418
  Transmission Date: 20120825
  Serious: Yes (Other)
  Sender: FDA-Public Use
  Company Number: BR-ABBOTT-12P-020-0927408-00

PATIENT
  Sex: Female
  Weight: 69 kg

DRUGS (3)
  1. METHOTREXATE [Concomitant]
     Indication: ARTHRITIS
     Dosage: MONDAYS: 1 TAB IN THE MORNING AND 1 IN THE EVENING/ TUESDAYS: 1 TAB IN THE MORNING
     Route: 048
     Dates: start: 20000101
  2. PRELONE [Concomitant]
     Indication: ARTHRITIS
     Route: 048
     Dates: start: 20000101
  3. HUMIRA [Suspect]
     Indication: RHEUMATOID ARTHRITIS
     Route: 058
     Dates: start: 20100101, end: 20120108

REACTIONS (6)
  - FOOT DEFORMITY [None]
  - PAIN [None]
  - DEFORMITY [None]
  - DRUG INEFFECTIVE [None]
  - JOINT SWELLING [None]
  - ELBOW DEFORMITY [None]
